FAERS Safety Report 18667157 (Version 1)
Quarter: 2020Q4

REPORT INFORMATION
  Report Type: Spontaneous
  Country: US (occurrence: US)
  Receive Date: 20201228
  Receipt Date: 20201228
  Transmission Date: 20210114
  Serious: No
  Sender: FDA-Public Use
  Company Number: US-AUROBINDO-AUR-APL-2020-056497

PATIENT
  Age: 48 Year
  Sex: Female
  Weight: 65.7 kg

DRUGS (4)
  1. PROGESTERONE INJECTION USP 500MG/10ML MULTIPLE-DOSE VIAL [Suspect]
     Active Substance: PROGESTERONE
     Indication: IN VITRO FERTILISATION
     Dosage: 1 MILLILITER, DAILY
     Route: 030
     Dates: start: 20201011, end: 20201027
  2. PRENATAL VITAMINS [Concomitant]
     Active Substance: VITAMINS
     Indication: PRODUCT USED FOR UNKNOWN INDICATION
     Dosage: UNK
     Route: 065
  3. BABY ASPIRIN [Concomitant]
     Active Substance: ASPIRIN
     Indication: PRODUCT USED FOR UNKNOWN INDICATION
     Dosage: UNK
     Route: 065
  4. ESTRADIOL. [Concomitant]
     Active Substance: ESTRADIOL
     Indication: PRODUCT USED FOR UNKNOWN INDICATION
     Dosage: UNK
     Route: 065

REACTIONS (2)
  - Product packaging quantity issue [Unknown]
  - Injection site pain [Unknown]

NARRATIVE: CASE EVENT DATE: 20201011
